FAERS Safety Report 4726893-6 (Version None)
Quarter: 2005Q3

REPORT INFORMATION
  Report Type: 
  Country: None (occurrence: None)
  Receive Date: 20050726
  Receipt Date: 20050726
  Transmission Date: 20060218
  Serious: No
  Sender: FDA-Public Use
  Company Number: None

PATIENT
  Age: 51 Year
  Sex: Female
  Weight: 61.6892 kg

DRUGS (5)
  1. CYMBALTA [Suspect]
     Indication: DEPRESSION
     Dosage: 30 MG 1 PER DAY ORAL
     Route: 048
     Dates: start: 20041115, end: 20050220
  2. CYMBALTA [Suspect]
     Indication: FATIGUE
     Dosage: 30 MG 1 PER DAY ORAL
     Route: 048
     Dates: start: 20041115, end: 20050220
  3. EFFEXOR XR [Suspect]
     Indication: ANXIETY
     Dosage: 300 MG 150 BID ORAL
     Route: 048
     Dates: start: 20010101, end: 20030101
  4. EFFEXOR XR [Suspect]
     Indication: DEPRESSION
     Dosage: 300 MG 150 BID ORAL
     Route: 048
     Dates: start: 20010101, end: 20030101
  5. LIBRIUM [Concomitant]

REACTIONS (5)
  - FACE OEDEMA [None]
  - HEART RATE IRREGULAR [None]
  - HYPERTENSION [None]
  - SUICIDAL IDEATION [None]
  - URTICARIA [None]
